FAERS Safety Report 19191812 (Version 1)
Quarter: 2021Q2

REPORT INFORMATION
  Report Type: Spontaneous
  Country: GR (occurrence: GR)
  Receive Date: 20210428
  Receipt Date: 20210428
  Transmission Date: 20210717
  Serious: Yes (Disabling, Other)
  Sender: FDA-Public Use
  Company Number: GR-FRESENIUS KABI-FK202104327

PATIENT
  Sex: Male

DRUGS (6)
  1. CAFFEINE CITRATE (MANUFACTURER UNKNOWN) [Suspect]
     Active Substance: CAFFEINE CITRATE
     Indication: NEONATAL RESPIRATORY FAILURE
     Route: 042
  2. GENTAMICIN (MANUFACTURER UNKNOWN) [Suspect]
     Active Substance: GENTAMICIN
     Indication: NEONATAL RESPIRATORY FAILURE
     Route: 042
  3. FENTANYL (MANUFACTURER UNKNOWN) [Suspect]
     Active Substance: FENTANYL
     Indication: NEONATAL RESPIRATORY FAILURE
     Route: 042
  4. AMPICILLIN [Suspect]
     Active Substance: AMPICILLIN
     Indication: NEONATAL RESPIRATORY FAILURE
     Route: 042
  5. CEFTRIAXONE FOR INJECTION (MANUFACTURER UNKNOWN) [Suspect]
     Active Substance: CEFTRIAXONE
     Indication: NEONATAL RESPIRATORY FAILURE
     Route: 042
  6. DOPAMINE [Suspect]
     Active Substance: DOPAMINE HYDROCHLORIDE
     Indication: NEONATAL RESPIRATORY FAILURE
     Route: 042

REACTIONS (7)
  - Peripheral ischaemia [Recovered/Resolved with Sequelae]
  - Peripheral artery thrombosis [Recovered/Resolved with Sequelae]
  - Arterial disorder [Recovered/Resolved with Sequelae]
  - Dry gangrene [Recovered/Resolved with Sequelae]
  - Infusion site extravasation [Recovered/Resolved with Sequelae]
  - Oedema peripheral [Recovered/Resolved with Sequelae]
  - Peripheral artery occlusion [Recovered/Resolved with Sequelae]
